FAERS Safety Report 8009998-6 (Version None)
Quarter: 2011Q4

REPORT INFORMATION
  Report Type: 
  Country: None (occurrence: None)
  Receive Date: 20111228
  Receipt Date: 20111214
  Transmission Date: 20120403
  Serious: Yes (Hospitalization)
  Sender: FDA-Public Use
  Company Number: CH-ELI_LILLY_AND_COMPANY-CH201111004077

PATIENT
  Age: 65 Year
  Sex: Male

DRUGS (8)
  1. FORTEO [Suspect]
     Indication: OSTEOPOROSIS
     Dosage: 20 UG, QD
     Route: 058
     Dates: start: 20101123
  2. SYMBICORT [Concomitant]
     Indication: BRONCHITIS CHRONIC
     Route: 048
  3. CALCIMAGON [Concomitant]
     Indication: OSTEOPOROSIS
     Route: 048
  4. SERALIN [Concomitant]
     Indication: DEPRESSION
     Route: 048
  5. LISINOPRIL [Concomitant]
     Indication: HYPERTENSION
     Route: 048
  6. ASPIRIN [Concomitant]
     Indication: ANTICOAGULANT THERAPY
     Route: 048
  7. MYSOLINE [Concomitant]
     Indication: DEPRESSION
     Route: 048
  8. TRAZODONE HCL [Concomitant]
     Indication: DEPRESSION
     Route: 048

REACTIONS (2)
  - DYSPNOEA [None]
  - MUSCULOSKELETAL CHEST PAIN [None]
